FAERS Safety Report 6874964-0 (Version None)
Quarter: 2010Q2

REPORT INFORMATION
  Report Type: 
  Country: None (occurrence: None)
  Receive Date: 20100616
  Receipt Date: 20081104
  Transmission Date: 20101027
  Serious: Yes (Other)
  Sender: FDA-Public Use
  Company Number: 1000001133

PATIENT
  Age: 63 Year
  Sex: Female

DRUGS (8)
  1. NAMENDA [Suspect]
     Indication: MIGRAINE
     Dosage: 5 MG (1 IN 1 D),ORAL ; 10 MG (5 MG,2 IN 1 D),ORAL
     Route: 048
     Dates: start: 20080905, end: 20080911
  2. NAMENDA [Suspect]
     Indication: MIGRAINE
     Dosage: 5 MG (1 IN 1 D),ORAL ; 10 MG (5 MG,2 IN 1 D),ORAL
     Route: 048
     Dates: start: 20080912, end: 20080918
  3. NAMENDA [Suspect]
     Dosage: 15 MG,ORAL
     Route: 048
     Dates: start: 20080919, end: 20080924
  4. TOPAMAX [Concomitant]
  5. IMITREX [Concomitant]
  6. WELLBUTRIN [Concomitant]
  7. CYMBALTA [Concomitant]
  8. CAFERGOT [Concomitant]

REACTIONS (1)
  - SUICIDAL IDEATION [None]
